FAERS Safety Report 18152173 (Version 1)
Quarter: 2020Q3

REPORT INFORMATION
  Report Type: Report from Study
  Country: CO (occurrence: CO)
  Receive Date: 20200814
  Receipt Date: 20200814
  Transmission Date: 20201103
  Serious: Yes (Death)
  Sender: FDA-Public Use
  Company Number: CO-ASTRAZENECA-2020SF02944

PATIENT
  Age: 4337 Week
  Sex: Male

DRUGS (1)
  1. SYMBICORT [Suspect]
     Active Substance: BUDESONIDE\FORMOTEROL FUMARATE DIHYDRATE
     Indication: ASTHMA
     Dosage: 160.45 UG EVERY 12 HOURS
     Route: 055
     Dates: start: 20151201

REACTIONS (1)
  - Death [Fatal]

NARRATIVE: CASE EVENT DATE: 20200116
